FAERS Safety Report 18116036 (Version 2)
Quarter: 2020Q3

REPORT INFORMATION
  Report Type: Spontaneous
  Country: US (occurrence: US)
  Receive Date: 20200805
  Receipt Date: 20200810
  Transmission Date: 20201103
  Serious: Yes (Death, Hospitalization, Other)
  Sender: FDA-Public Use
  Company Number: US-SHIRE-US202024755

PATIENT
  Age: 71 Year
  Sex: Female

DRUGS (8)
  1. GATTEX [Suspect]
     Active Substance: TEDUGLUTIDE\WATER
     Indication: PRODUCT USED FOR UNKNOWN INDICATION
     Dosage: 0.273 MILLILITER, 1X/DAY:QD
     Route: 058
  2. GATTEX [Suspect]
     Active Substance: TEDUGLUTIDE\WATER
     Indication: PRODUCT USED FOR UNKNOWN INDICATION
     Dosage: 0.273 MILLILITER, 1X/DAY:QD
     Route: 058
  3. GATTEX [Suspect]
     Active Substance: TEDUGLUTIDE\WATER
     Dosage: 0.2870 (UNIT UNKNOWN)
     Route: 058
     Dates: start: 20200527
  4. GATTEX [Suspect]
     Active Substance: TEDUGLUTIDE\WATER
     Dosage: 0.2870 (UNIT UNKNOWN)
     Route: 058
     Dates: start: 20200527
  5. GATTEX [Suspect]
     Active Substance: TEDUGLUTIDE\WATER
     Indication: PRODUCT USED FOR UNKNOWN INDICATION
     Dosage: 0.273 MILLILITER, 1X/DAY:QD
     Route: 058
  6. GATTEX [Suspect]
     Active Substance: TEDUGLUTIDE\WATER
     Dosage: 0.2870 (UNIT UNKNOWN)
     Route: 058
     Dates: start: 20200527
  7. GATTEX [Suspect]
     Active Substance: TEDUGLUTIDE\WATER
     Indication: PRODUCT USED FOR UNKNOWN INDICATION
     Dosage: 0.273 MILLILITER, 1X/DAY:QD
     Route: 058
  8. GATTEX [Suspect]
     Active Substance: TEDUGLUTIDE\WATER
     Dosage: 0.2870 (UNIT UNKNOWN)
     Route: 058
     Dates: start: 20200527

REACTIONS (3)
  - Pneumonia [Fatal]
  - Kidney infection [Fatal]
  - Thrombosis [Fatal]

NARRATIVE: CASE EVENT DATE: 20200724
